FAERS Safety Report 19402056 (Version 2)
Quarter: 2021Q2

REPORT INFORMATION
  Report Type: Spontaneous
  Country: FI (occurrence: FI)
  Receive Date: 20210611
  Receipt Date: 20210616
  Transmission Date: 20210717
  Serious: Yes (Other)
  Sender: FDA-Public Use
  Company Number: FI-AMGEN-FINSP2021087038

PATIENT
  Age: 77 Year
  Sex: Male

DRUGS (2)
  1. ENANTONE MONATS?DEPOT [Concomitant]
     Active Substance: LEUPROLIDE ACETATE
     Indication: PROSTATE CANCER
     Dosage: 4,DF,YEARLY
     Route: 058
  2. XGEVA [Suspect]
     Active Substance: DENOSUMAB
     Indication: PRODUCT USED FOR UNKNOWN INDICATION
     Dosage: CYCLICAL
     Route: 058
     Dates: start: 2019

REACTIONS (7)
  - Fatigue [Unknown]
  - Oropharyngeal pain [Unknown]
  - Asthenia [Unknown]
  - Facial paresis [Unknown]
  - Pyrexia [Unknown]
  - Drug interaction [Unknown]
  - Pain [Unknown]

NARRATIVE: CASE EVENT DATE: 20210319
